FAERS Safety Report 21849295 (Version 1)
Quarter: 2023Q1

REPORT INFORMATION
  Report Type: Other
  Country: US (occurrence: None)
  Receive Date: 20230111
  Receipt Date: 20230111
  Transmission Date: 20230418
  Serious: Yes (Other)
  Sender: FDA-Public Use
  Company Number: US-ROCHE-3256901

PATIENT
  Age: 22 Year
  Sex: Female

DRUGS (3)
  1. OSELTAMIVIR [Suspect]
     Active Substance: OSELTAMIVIR
     Indication: Influenza
     Route: 065
  2. BUPIVACAINE [Concomitant]
     Active Substance: BUPIVACAINE
  3. FENTANYL [Concomitant]
     Active Substance: FENTANYL

REACTIONS (7)
  - Amniotic cavity infection [Unknown]
  - Respiratory distress [Unknown]
  - Splenic rupture [Unknown]
  - Meconium abnormal [Unknown]
  - Postpartum haemorrhage [Unknown]
  - Maternal exposure during pregnancy [Unknown]
  - Septic coagulopathy [Unknown]
